FAERS Safety Report 15493450 (Version 1)
Quarter: 2018Q4

REPORT INFORMATION
  Report Type: Spontaneous
  Country: US (occurrence: US)
  Receive Date: 20181012
  Receipt Date: 20181012
  Transmission Date: 20190205
  Serious: Yes (Other)
  Sender: FDA-Public Use
  Company Number: US-ELI_LILLY_AND_COMPANY-US201810004429

PATIENT
  Age: 59 Year
  Sex: Female

DRUGS (5)
  1. LANTUS [Concomitant]
     Active Substance: INSULIN GLARGINE
     Indication: DIABETES MELLITUS
     Dosage: 30 MG, EACH MORNING
  2. HUMALOG [Suspect]
     Active Substance: INSULIN LISPRO
     Indication: TYPE 2 DIABETES MELLITUS
     Dosage: 12+SLIDING SCALE UNITS IN THE MORNING AND SLIDING SCALE DURING LUNCH AND DINNER
     Route: 065
     Dates: start: 201710
  3. LANTUS [Concomitant]
     Active Substance: INSULIN GLARGINE
     Dosage: 30 MG, AT NIGHT
  4. HUMALOG [Suspect]
     Active Substance: INSULIN LISPRO
     Indication: TYPE 2 DIABETES MELLITUS
     Dosage: UNK, UNKNOWN
     Route: 065
     Dates: start: 201310, end: 201710
  5. HUMALOG [Suspect]
     Active Substance: INSULIN LISPRO
     Dosage: 12+SLIDING SCALE UNITS IN THE MORNING AND SLIDING SCALE DURING LUNCH AND DINNER
     Route: 065

REACTIONS (3)
  - Renal disorder [Unknown]
  - Glycosylated haemoglobin increased [Unknown]
  - Incorrect dose administered [Unknown]

NARRATIVE: CASE EVENT DATE: 20180917
